FAERS Safety Report 4995542-4 (Version None)
Quarter: 2006Q2

REPORT INFORMATION
  Report Type: 
  Country: None (occurrence: None)
  Receive Date: 20060508
  Receipt Date: 20060426
  Transmission Date: 20061013
  Serious: Yes (Death)
  Sender: FDA-Public Use
  Company Number: FR-ROCHE-446238

PATIENT
  Age: 33 Year
  Sex: Male
  Weight: 65 kg

DRUGS (3)
  1. INVIRASE [Suspect]
     Route: 048
     Dates: start: 20060208, end: 20060307
  2. COMBIVIR [Suspect]
     Route: 048
     Dates: start: 20060208, end: 20060307
  3. NORVIR [Suspect]
     Route: 048
     Dates: start: 20060208, end: 20060307

REACTIONS (21)
  - ASCITES [None]
  - BACTERIA BLOOD IDENTIFIED [None]
  - CEREBRAL HAEMORRHAGE [None]
  - COMA [None]
  - DEHYDRATION [None]
  - HEPATOMEGALY [None]
  - HEPATOSPLENOMEGALY [None]
  - HISTIOCYTOSIS HAEMATOPHAGIC [None]
  - HYPOKALAEMIA [None]
  - HYPONATRAEMIA [None]
  - LUNG DISORDER [None]
  - METABOLIC ACIDOSIS [None]
  - MYDRIASIS [None]
  - NON-HODGKIN'S LYMPHOMA [None]
  - PANCYTOPENIA [None]
  - PLEURAL EFFUSION [None]
  - RENAL FAILURE [None]
  - RESPIRATORY FAILURE [None]
  - SERUM FERRITIN INCREASED [None]
  - SPLENIC ABSCESS [None]
  - VENTRICULAR DYSFUNCTION [None]
